FAERS Safety Report 7519751-5 (Version None)
Quarter: 2011Q2

REPORT INFORMATION
  Report Type: 
  Country: None (occurrence: None)
  Receive Date: 20110602
  Receipt Date: 20110531
  Transmission Date: 20111010
  Serious: Yes (Other)
  Sender: FDA-Public Use
  Company Number: US-PFIZER INC-2011118114

PATIENT
  Sex: Male
  Weight: 104 kg

DRUGS (1)
  1. LYRICA [Suspect]
     Indication: FIBROMYALGIA
     Dosage: 50 MG, DAILY AT BEDTIME
     Route: 048
     Dates: start: 20110501

REACTIONS (2)
  - HYPERCHLORHYDRIA [None]
  - ABDOMINAL DISTENSION [None]
